FAERS Safety Report 7164632-2 (Version None)
Quarter: 2010Q4

REPORT INFORMATION
  Report Type: 
  Country: None (occurrence: None)
  Receive Date: 20101123
  Receipt Date: 20100818
  Transmission Date: 20110411
  Serious: No
  Sender: FDA-Public Use
  Company Number: 016430

PATIENT
  Sex: Female

DRUGS (24)
  1. CIMZIA [Suspect]
     Indication: CROHN'S DISEASE
     Dosage: 400 MG 1X/MONTH, SUBCUTANEOUS
     Route: 058
     Dates: start: 20100517, end: 20100729
  2. IMODIUM [Concomitant]
  3. ZYRTEC [Concomitant]
  4. TOPAMAX [Concomitant]
  5. NASONEX [Concomitant]
  6. COMPAZINE [Concomitant]
  7. BUTALBITAL [Concomitant]
  8. LIDODERM [Concomitant]
  9. NEURONTIN [Concomitant]
  10. NEXIUM [Concomitant]
  11. MVT [Concomitant]
  12. VITAMIN B-12 [Concomitant]
  13. DARVOCET [Concomitant]
  14. SOMA [Concomitant]
  15. AMBIEN [Concomitant]
  16. BENTYL [Concomitant]
  17. CENTRUM SILVER [Concomitant]
  18. CLONAZEPAM [Concomitant]
  19. ENTOCORT EC [Concomitant]
  20. FIORICET [Concomitant]
  21. LIDOCAINE HYDROCHLORIDE [Concomitant]
  22. LYRICA [Concomitant]
  23. PROCHLORPERAZINE [Concomitant]
  24. TYLENOL-500 [Concomitant]

REACTIONS (9)
  - ARTHRALGIA [None]
  - BACK PAIN [None]
  - HYPOAESTHESIA [None]
  - INJECTION SITE HAEMATOMA [None]
  - INJECTION SITE IRRITATION [None]
  - MUSCLE SPASMS [None]
  - NEUROPATHY PERIPHERAL [None]
  - PAIN IN EXTREMITY [None]
  - RASH [None]
